FAERS Safety Report 15902852 (Version 1)
Quarter: 2019Q1

REPORT INFORMATION
  Report Type: Report from Study
  Country: ES (occurrence: ES)
  Receive Date: 20190202
  Receipt Date: 20190202
  Transmission Date: 20190417
  Serious: Yes (Hospitalization, Other)
  Sender: FDA-Public Use
  Company Number: ES-ACCORD-104923

PATIENT
  Age: 75 Year
  Sex: Male
  Weight: 74 kg

DRUGS (13)
  1. AFLIBERCEPT [Suspect]
     Active Substance: AFLIBERCEPT
     Indication: COLORECTAL CANCER METASTATIC
     Dosage: RECEIVED 328 MG DOSE ON 06-MAY AND 22-APR-2014,320 MG ON 10-JUN-2014.
     Route: 041
     Dates: start: 20140520, end: 20140520
  2. LOPERAMIDE [Concomitant]
     Active Substance: LOPERAMIDE
     Indication: THERAPEUTIC PROCEDURE
  3. LEUCOVORIN. [Suspect]
     Active Substance: LEUCOVORIN
     Indication: COLORECTAL CANCER METASTATIC
     Route: 041
     Dates: start: 20140610, end: 20140610
  4. LEUCOVORIN. [Suspect]
     Active Substance: LEUCOVORIN
     Indication: COLORECTAL CANCER METASTATIC
     Dosage: LAS DOS PRIMERAS DOSIS 328 MG Y 240 MG LOS DOS ULTIMOS
     Route: 041
     Dates: start: 20140422, end: 20140422
  5. LEUCOVORIN. [Suspect]
     Active Substance: LEUCOVORIN
     Indication: COLORECTAL CANCER METASTATIC
     Dosage: 609 MG DOSE ON 06-MAY-2014 TO 06-MAY-2014,456 MG DOSE ON 10-JUN-2014 TO 10-JUN-2014
     Route: 041
     Dates: start: 20140520, end: 20140520
  6. OMEPRAZOLE. [Concomitant]
     Active Substance: OMEPRAZOLE
     Indication: THERAPEUTIC PROCEDURE
  7. LEUCOVORIN. [Suspect]
     Active Substance: LEUCOVORIN
     Indication: COLORECTAL CANCER METASTATIC
     Route: 041
     Dates: start: 20140506, end: 20140506
  8. AFLIBERCEPT [Suspect]
     Active Substance: AFLIBERCEPT
     Indication: COLORECTAL CANCER METASTATIC
     Route: 041
     Dates: start: 20140610, end: 20140610
  9. DIGOXIN. [Concomitant]
     Active Substance: DIGOXIN
     Indication: THERAPEUTIC PROCEDURE
     Dosage: THE FIRST TWO DOSES 328 MG AND 240 MG THE LAST TWO
     Route: 065
  10. ZALTRAP [Suspect]
     Active Substance: ZIV-AFLIBERCEPT
     Indication: COLORECTAL CANCER METASTATIC
     Dosage: THE FIRST TWO DOSES 328 MG AND 240 MG THE LAST TWO
     Route: 041
     Dates: start: 20140506, end: 20140506
  11. AFLIBERCEPT [Suspect]
     Active Substance: AFLIBERCEPT
     Indication: COLORECTAL CANCER METASTATIC
     Route: 041
     Dates: start: 20140422, end: 20140422
  12. FLUOROURACIL. [Suspect]
     Active Substance: FLUOROURACIL
     Indication: COLORECTAL CANCER METASTATIC
     Dosage: RECEIVED 456 MG ON 06-MAY AND 10-JUN-2014,4565 MG ON 22-APR-2014,3195 MG ON 20-MAY-2014.
     Route: 040
     Dates: start: 20140520, end: 20140520
  13. IRINOTECAN [Suspect]
     Active Substance: IRINOTECAN
     Indication: COLORECTAL CANCER METASTATIC
     Dosage: 240 MG DOSE ON 20-MAY-2014 TO 20-MAY-2014,274 MG DOSE ON 06-AMY-2014, 2015 MG DOSE ON 10-JUN-2014
     Route: 041
     Dates: start: 20140422, end: 20140422

REACTIONS (6)
  - Decreased appetite [Recovered/Resolved]
  - Renal failure [Not Recovered/Not Resolved]
  - Pain in extremity [Recovered/Resolved]
  - Pulmonary embolism [Recovered/Resolved]
  - Diarrhoea [Recovered/Resolved]
  - Deep vein thrombosis [Recovered/Resolved]

NARRATIVE: CASE EVENT DATE: 20140610
